FAERS Safety Report 9257458 (Version 3)
Quarter: 2013Q3

REPORT INFORMATION
  Report Type: Spontaneous
  Country: US (occurrence: US)
  Receive Date: 20130426
  Receipt Date: 20130722
  Transmission Date: 20140515
  Serious: No
  Sender: FDA-Public Use
  Company Number: US-PFIZER INC-2013128302

PATIENT
  Age: 51 Year
  Sex: Female

DRUGS (3)
  1. LEVOXYL [Suspect]
     Indication: HYPOTHYROIDISM
     Dosage: 3.5 TABLETS OF 50 MCG/DAY
     Route: 048
     Dates: start: 201209
  2. LEVOXYL [Suspect]
     Indication: AUTOIMMUNE THYROIDITIS
  3. LOSARTAN POTASSIUM [Concomitant]
     Indication: HYPERTENSION
     Dosage: 100 MG, 1X/DAY

REACTIONS (2)
  - Influenza [Not Recovered/Not Resolved]
  - Reaction to drug excipients [Unknown]
